FAERS Safety Report 6326597-2 (Version None)
Quarter: 2009Q3

REPORT INFORMATION
  Report Type: 
  Country: None (occurrence: None)
  Receive Date: 20090821
  Receipt Date: 20090820
  Transmission Date: 20100115
  Serious: Yes (Death, Other)
  Sender: FDA-Public Use
  Company Number: ADR12692009

PATIENT
  Age: 64 Year
  Sex: 0

DRUGS (6)
  1. RANITIDINE [Suspect]
  2. CLOZAPINE [Concomitant]
  3. ZAPONEX [Concomitant]
  4. EPILIM [Concomitant]
  5. VALPROIC ACID [Concomitant]
  6. SALBUTAMOL [Concomitant]

REACTIONS (3)
  - CARDIAC ARREST [None]
  - CIRCULATORY COLLAPSE [None]
  - DRUG INTERACTION [None]
